FAERS Safety Report 7352997-8 (Version None)
Quarter: 2011Q1

REPORT INFORMATION
  Report Type: 
  Country: None (occurrence: None)
  Receive Date: 20110315
  Receipt Date: 20110304
  Transmission Date: 20110831
  Serious: Yes (Death)
  Sender: FDA-Public Use
  Company Number: A0896834A

PATIENT
  Age: 82 Year
  Sex: Female

DRUGS (7)
  1. CELLCEPT [Concomitant]
  2. SOTALOL HYDROCHLORIDE [Concomitant]
  3. LASIX [Concomitant]
  4. PROMACTA [Suspect]
     Indication: AUTOIMMUNE THROMBOCYTOPENIA
     Dosage: 25MG PER DAY
     Route: 048
     Dates: start: 20101010, end: 20101104
  5. CORTICOSTEROIDS [Concomitant]
  6. ZOCOR [Concomitant]
  7. PROTONIX [Concomitant]

REACTIONS (2)
  - SYSTEMIC LUPUS ERYTHEMATOSUS [None]
  - PANCYTOPENIA [None]
